FAERS Safety Report 8504826-4 (Version None)
Quarter: 2012Q3

REPORT INFORMATION
  Report Type: 
  Country: None (occurrence: None)
  Receive Date: 20120712
  Receipt Date: 20120703
  Transmission Date: 20120928
  Serious: Yes (Death, Hospitalization)
  Sender: FDA-Public Use
  Company Number: RO-BRISTOL-MYERS SQUIBB COMPANY-16737553

PATIENT
  Age: 48 Year
  Sex: Male

DRUGS (1)
  1. YERVOY [Suspect]
     Indication: METASTATIC MALIGNANT MELANOMA
     Dosage: 2 ND DOSE:6JUN12
     Route: 042
     Dates: start: 20120516

REACTIONS (3)
  - NEOPLASM MALIGNANT [None]
  - ANAEMIA [None]
  - HEPATIC FAILURE [None]
